FAERS Safety Report 20990616 (Version 4)
Quarter: 2024Q1

REPORT INFORMATION
  Report Type: Other
  Country: DE (occurrence: None)
  Receive Date: 20220622
  Receipt Date: 20240111
  Transmission Date: 20240410
  Serious: No
  Sender: FDA-Public Use
  Company Number: DE-ROCHE-3120180

PATIENT
  Age: 46 Year
  Sex: Female

DRUGS (21)
  1. OCREVUS [Suspect]
     Active Substance: OCRELIZUMAB
     Indication: Relapsing multiple sclerosis
     Route: 042
     Dates: start: 20181106, end: 20181120
  2. OCREVUS [Suspect]
     Active Substance: OCRELIZUMAB
     Route: 042
     Dates: start: 20190521
  3. PANTOZOL [Concomitant]
     Active Substance: PANTOPRAZOLE SODIUM
     Route: 048
     Dates: start: 20190809, end: 20190904
  4. CANNABIS SATIVA LEAF [Concomitant]
     Indication: Muscle spasticity
     Route: 048
  5. DALFAMPRIDINE [Concomitant]
     Active Substance: DALFAMPRIDINE
     Route: 048
     Dates: start: 20200901, end: 20200930
  6. RAMIPRIL [Concomitant]
     Active Substance: RAMIPRIL
     Indication: Hypertension
     Route: 048
     Dates: end: 202006
  7. SPASMEX (GERMANY) [Concomitant]
     Indication: Bladder dysfunction
     Route: 048
     Dates: end: 202006
  8. ACETAMINOPHEN [Concomitant]
     Active Substance: ACETAMINOPHEN
     Indication: Premedication
     Route: 048
     Dates: start: 20181106
  9. PREGABALIN [Concomitant]
     Active Substance: PREGABALIN
     Route: 048
  10. SOLIFENACIN [Concomitant]
     Active Substance: SOLIFENACIN
     Indication: Bladder dysfunction
     Route: 048
     Dates: start: 202007
  11. METHYLPREDNISOLONE [Concomitant]
     Active Substance: METHYLPREDNISOLONE
     Route: 042
     Dates: start: 20190809, end: 20190813
  12. METHYLPREDNISOLONE [Concomitant]
     Active Substance: METHYLPREDNISOLONE
     Route: 042
     Dates: start: 20181106
  13. CLEMASTINE FUMARATE [Concomitant]
     Active Substance: CLEMASTINE FUMARATE
     Indication: Premedication
     Route: 042
     Dates: start: 20181106
  14. METHYLPREDNISOLONE [Concomitant]
     Active Substance: METHYLPREDNISOLONE
     Route: 042
     Dates: start: 20210526, end: 20210530
  15. METHYLPREDNISOLONE [Concomitant]
     Active Substance: METHYLPREDNISOLONE
     Route: 042
     Dates: start: 20210618, end: 20210622
  16. METHYLPREDNISOLONE [Concomitant]
     Active Substance: METHYLPREDNISOLONE
     Route: 042
     Dates: start: 201903, end: 201903
  17. COMIRNATY (TOZINAMERAN) [Concomitant]
     Active Substance: TOZINAMERAN
     Indication: COVID-19 immunisation
     Route: 030
     Dates: start: 20210317, end: 20210317
  18. COMIRNATY (TOZINAMERAN) [Concomitant]
     Active Substance: TOZINAMERAN
     Route: 030
     Dates: start: 20211011, end: 20211011
  19. COMIRNATY (TOZINAMERAN) [Concomitant]
     Active Substance: TOZINAMERAN
     Route: 030
     Dates: start: 20210418, end: 20210418
  20. FOSTER [Concomitant]
     Active Substance: BECLOMETHASONE\FORMOTEROL
     Route: 055
  21. ALBUTEROL [Concomitant]
     Active Substance: ALBUTEROL
     Dosage: DEFINITION OF THE INTERVAL: AS REQUIRED
     Route: 055

REACTIONS (1)
  - COVID-19 [Recovered/Resolved with Sequelae]

NARRATIVE: CASE EVENT DATE: 20220217
